FAERS Safety Report 12372595 (Version 7)
Quarter: 2018Q3

REPORT INFORMATION
  Report Type: Spontaneous
  Country: US (occurrence: US)
  Receive Date: 20160516
  Receipt Date: 20180904
  Transmission Date: 20181010
  Serious: No
  Sender: FDA-Public Use
  Company Number: US-PFIZER INC-2016257869

PATIENT
  Age: 70 Year
  Sex: Female
  Weight: 61 kg

DRUGS (1)
  1. PREMARIN [Suspect]
     Active Substance: ESTROGENS, CONJUGATED
     Indication: BLADDER OPERATION
     Dosage: UNK, 2X/WEEK

REACTIONS (6)
  - Product use in unapproved indication [Unknown]
  - Wrong technique in product usage process [Unknown]
  - Vaginal infection [Recovered/Resolved]
  - Vulvovaginal pruritus [Unknown]
  - Vulvovaginal burning sensation [Unknown]
  - Body height decreased [Unknown]
